FAERS Safety Report 11415882 (Version 1)
Quarter: 2015Q3

REPORT INFORMATION
  Report Type: Report from Study
  Country: US (occurrence: US)
  Receive Date: 20150825
  Receipt Date: 20150825
  Transmission Date: 20151125
  Serious: Yes (Death, Hospitalization)
  Sender: FDA-Public Use
  Company Number: US-UNITED THERAPEUTICS-REM_00047_2003

PATIENT
  Age: 28 Year
  Sex: Female
  Weight: 74.84 kg

DRUGS (6)
  1. PREDNISONE. [Concomitant]
     Active Substance: PREDNISONE
     Indication: IMMUNE THROMBOCYTOPENIC PURPURA
     Route: 048
  2. REMODULIN [Suspect]
     Active Substance: TREPROSTINIL
     Indication: PULMONARY HYPERTENSION
     Dosage: 32 NG/KG/MIN
     Route: 042
     Dates: start: 20030819
  3. LASIX [Concomitant]
     Active Substance: FUROSEMIDE
     Indication: RIGHT VENTRICULAR FAILURE
     Route: 048
  4. LOVENOX [Concomitant]
     Active Substance: ENOXAPARIN SODIUM
     Indication: ANTICOAGULANT THERAPY
  5. ARGATROBAN. [Concomitant]
     Active Substance: ARGATROBAN
     Indication: ANTICOAGULANT THERAPY
  6. COUMADIN [Concomitant]
     Active Substance: WARFARIN SODIUM
     Route: 048

REACTIONS (14)
  - Cardiac arrest [Fatal]
  - Glomerulonephritis proliferative [Fatal]
  - Peripheral swelling [Not Recovered/Not Resolved]
  - Thrombocytopenia [Not Recovered/Not Resolved]
  - Haematoma [Not Recovered/Not Resolved]
  - Suprapubic pain [Recovered/Resolved]
  - Bronchitis [Not Recovered/Not Resolved]
  - Pulmonary hypertension [Fatal]
  - Subclavian vein thrombosis [Recovered/Resolved]
  - Sepsis [Recovered/Resolved]
  - Urosepsis [Recovered/Resolved]
  - Axillary vein thrombosis [Recovered/Resolved]
  - Catheter site haemorrhage [Not Recovered/Not Resolved]
  - Urinary tract infection [Recovered/Resolved]

NARRATIVE: CASE EVENT DATE: 200311
